FAERS Safety Report 7686793 (Version 21)
Quarter: 2019Q4

REPORT INFORMATION
  Report Type: Report from Study
  Country: JP (occurrence: JP)
  Receive Date: 20101130
  Receipt Date: 20191210
  Transmission Date: 20200122
  Serious: Yes (Hospitalization, Other)
  Sender: FDA-Public Use
  Company Number: JP-JNJFOC-20101108379

PATIENT
  Age: 28 Year
  Sex: Male

DRUGS (70)
  1. NORVIR [Suspect]
     Active Substance: RITONAVIR
     Indication: HIV INFECTION
     Route: 048
     Dates: start: 20060905, end: 20110725
  2. TRUVADA [Suspect]
     Active Substance: EMTRICITABINE\TENOFOVIR DISOPROXIL FUMARATE
     Indication: HIV INFECTION
     Route: 048
     Dates: start: 20060905, end: 20170307
  3. EPIVIR [Suspect]
     Active Substance: LAMIVUDINE
     Indication: HIV INFECTION
     Route: 048
     Dates: start: 19980409, end: 20000104
  4. CROSS EIGHT M [Concomitant]
     Active Substance: ANTIHEMOPHILIC FACTOR HUMAN
     Indication: FACTOR VIII DEFICIENCY
     Dosage: DOSE GIVEN ONCE 1/3 DAYS
     Route: 042
     Dates: start: 20070401, end: 20120212
  5. CROSS EIGHT M [Concomitant]
     Active Substance: ANTIHEMOPHILIC FACTOR HUMAN
     Indication: HAEMORRHOIDS
     Route: 042
     Dates: start: 20120218, end: 20120225
  6. GASCON [Concomitant]
     Active Substance: DIMETHICONE
     Indication: ABDOMINAL DISTENSION
     Route: 048
     Dates: start: 20090408, end: 20131002
  7. AZITHROMYCIN ANHYDROUS. [Concomitant]
     Active Substance: AZITHROMYCIN ANHYDROUS
     Indication: HIV INFECTION
     Route: 048
     Dates: start: 20010806
  8. PREZISTA [Suspect]
     Active Substance: DARUNAVIR ETHANOLATE
     Indication: HIV INFECTION
     Dosage: 300 MG X 2 TABLETS PER DAY, TWICE DAILY.
     Route: 048
     Dates: start: 20060905, end: 20181001
  9. EPIVIR [Suspect]
     Active Substance: LAMIVUDINE
     Route: 048
     Dates: start: 20010628, end: 20010701
  10. EPIVIR [Suspect]
     Active Substance: LAMIVUDINE
     Route: 048
     Dates: start: 20021205, end: 20060904
  11. CROSS EIGHT M [Concomitant]
     Active Substance: ANTIHEMOPHILIC FACTOR HUMAN
     Route: 042
     Dates: start: 20120710, end: 20140401
  12. CROSS EIGHT M [Concomitant]
     Active Substance: ANTIHEMOPHILIC FACTOR HUMAN
     Route: 042
     Dates: start: 20151216
  13. BIOFERMIN R [Concomitant]
     Active Substance: DIETARY SUPPLEMENT\PROBIOTICS
     Indication: ABDOMINAL DISTENSION
     Route: 048
     Dates: start: 20090408, end: 20140401
  14. FERROUS SULFATE. [Concomitant]
     Active Substance: FERROUS SULFATE
     Indication: ANAEMIA
     Route: 065
     Dates: start: 20120215, end: 20120710
  15. NERIPROCT [Concomitant]
     Active Substance: DIFLUCORTOLONE VALERATE\LIDOCAINE
     Route: 054
     Dates: start: 20120402, end: 20120902
  16. NERIPROCT [Concomitant]
     Active Substance: DIFLUCORTOLONE VALERATE\LIDOCAINE
     Indication: HAEMORRHOIDS
     Route: 061
     Dates: start: 20120903, end: 20121029
  17. VIDEX [Concomitant]
     Active Substance: DIDANOSINE
     Indication: HIV INFECTION
     Route: 048
     Dates: start: 20010420, end: 20010421
  18. KALETRA [Concomitant]
     Active Substance: LOPINAVIR\RITONAVIR
     Indication: HIV INFECTION
     Route: 048
     Dates: start: 20010420, end: 20010421
  19. CROSS EIGHT MC [Concomitant]
     Active Substance: ANTIHEMOPHILIC FACTOR HUMAN
     Indication: FACTOR VIII DEFICIENCY
  20. ISENTRESS [Suspect]
     Active Substance: RALTEGRAVIR POTASSIUM
     Indication: HIV INFECTION
     Route: 048
     Dates: start: 20080401, end: 20140616
  21. CROSS EIGHT M [Concomitant]
     Active Substance: ANTIHEMOPHILIC FACTOR HUMAN
     Indication: LOWER GASTROINTESTINAL HAEMORRHAGE
     Route: 042
     Dates: start: 20120213, end: 20120217
  22. VIRACEPT [Concomitant]
     Active Substance: NELFINAVIR MESYLATE
     Indication: HIV INFECTION
     Route: 048
     Dates: start: 19980409, end: 20000104
  23. VIRACEPT [Concomitant]
     Active Substance: NELFINAVIR MESYLATE
     Route: 048
     Dates: start: 20010628, end: 20010701
  24. VIRACEPT [Concomitant]
     Active Substance: NELFINAVIR MESYLATE
     Route: 048
     Dates: start: 20010730, end: 20021005
  25. KALETRA [Concomitant]
     Active Substance: LOPINAVIR\RITONAVIR
     Route: 048
     Dates: start: 20010611, end: 20010614
  26. NORVIR [Concomitant]
     Active Substance: RITONAVIR
     Indication: HIV INFECTION
     Route: 048
     Dates: start: 20110726
  27. COBICISTAT W/DARUNAVIR ETHANOLATE [Concomitant]
     Active Substance: COBICISTAT\DARUNAVIR ETHANOLATE
     Indication: HIV INFECTION
     Route: 048
     Dates: start: 20181002
  28. PREZISTA [Suspect]
     Active Substance: DARUNAVIR ETHANOLATE
     Route: 048
     Dates: start: 20080401
  29. BAKTAR [Concomitant]
     Active Substance: SULFAMETHOXAZOLE\TRIMETHOPRIM
     Indication: PROPHYLAXIS
     Route: 048
     Dates: start: 20070401, end: 20071106
  30. CROSS EIGHT M [Concomitant]
     Active Substance: ANTIHEMOPHILIC FACTOR HUMAN
     Route: 042
     Dates: start: 20151026, end: 20151208
  31. INVIRASE [Concomitant]
     Active Substance: SAQUINAVIR MESYLATE
     Indication: HIV INFECTION
     Route: 048
     Dates: start: 19961217, end: 19980408
  32. ZERIT [Concomitant]
     Active Substance: STAVUDINE
     Route: 048
     Dates: start: 20010628, end: 20010701
  33. PROZEI [Concomitant]
     Active Substance: AMPRENAVIR
     Indication: HIV INFECTION
     Route: 048
     Dates: start: 20000105, end: 20000124
  34. RETROVIR [Concomitant]
     Active Substance: ZIDOVUDINE
     Indication: HIV INFECTION
     Route: 048
     Dates: start: 20021205, end: 20060223
  35. BIOFERMIN [Concomitant]
     Active Substance: DIETARY SUPPLEMENT\PROBIOTICS
     Indication: ABDOMINAL DISTENSION
     Route: 048
     Dates: start: 20140402
  36. CROSS EIGHT M [Concomitant]
     Active Substance: ANTIHEMOPHILIC FACTOR HUMAN
     Dosage: 1000-2000UT
     Route: 042
     Dates: start: 20130825, end: 20130903
  37. CROSS EIGHT M [Concomitant]
     Active Substance: ANTIHEMOPHILIC FACTOR HUMAN
     Route: 042
     Dates: start: 20140401, end: 201404
  38. CROSS EIGHT M [Concomitant]
     Active Substance: ANTIHEMOPHILIC FACTOR HUMAN
     Route: 042
     Dates: start: 20151012, end: 20151018
  39. POSTERISAN [Concomitant]
     Active Substance: LIDOCAINE
     Route: 061
     Dates: start: 20170411
  40. NERIPROCT [Concomitant]
     Active Substance: DIFLUCORTOLONE VALERATE\LIDOCAINE
     Route: 061
     Dates: start: 20140602, end: 20151213
  41. BORRAZA-G [Concomitant]
     Active Substance: LIDOCAINE\TRIBENOSIDE
     Indication: HAEMORRHOIDS
     Route: 061
     Dates: start: 20120903, end: 20150525
  42. ZERIT [Concomitant]
     Active Substance: STAVUDINE
     Indication: HIV INFECTION
     Route: 048
     Dates: start: 19980409, end: 20000104
  43. ZIAGEN [Concomitant]
     Active Substance: ABACAVIR SULFATE
     Indication: HIV INFECTION
     Route: 048
     Dates: start: 20000105, end: 20000817
  44. PROZEI [Concomitant]
     Active Substance: AMPRENAVIR
     Route: 048
     Dates: start: 20000125, end: 20000817
  45. VIDEX [Concomitant]
     Active Substance: DIDANOSINE
     Route: 048
     Dates: start: 20010611, end: 20010614
  46. EPIVIR [Suspect]
     Active Substance: LAMIVUDINE
     Route: 048
     Dates: start: 20010730, end: 20020603
  47. RALTEGRAVIR. [Suspect]
     Active Substance: RALTEGRAVIR
     Indication: HIV INFECTION
     Route: 065
     Dates: start: 20070423
  48. TIVICAY [Suspect]
     Active Substance: DOLUTEGRAVIR SODIUM
     Indication: HIV INFECTION
     Route: 048
     Dates: start: 20140617
  49. NORVIR [Suspect]
     Active Substance: RITONAVIR
     Indication: HIV INFECTION
     Route: 048
     Dates: start: 20110726, end: 20181001
  50. CROSS EIGHT M [Concomitant]
     Active Substance: ANTIHEMOPHILIC FACTOR HUMAN
     Dosage: DOSE GIVEN ONCE 1/3 DAYS
     Route: 042
     Dates: start: 20120320, end: 20120709
  51. CROSS EIGHT M [Concomitant]
     Active Substance: ANTIHEMOPHILIC FACTOR HUMAN
     Route: 042
     Dates: start: 20150407, end: 20151011
  52. ZERIT [Concomitant]
     Active Substance: STAVUDINE
     Route: 048
     Dates: start: 20010730, end: 20020603
  53. MAGLAX [Concomitant]
     Active Substance: MAGNESIUM OXIDE
     Indication: HAEMORRHOIDS
     Route: 048
     Dates: start: 20151210, end: 20160202
  54. ZITHROMAC [Suspect]
     Active Substance: AZITHROMYCIN DIHYDRATE
     Indication: HIV INFECTION
  55. CROSS EIGHT M [Concomitant]
     Active Substance: ANTIHEMOPHILIC FACTOR HUMAN
     Indication: FACTOR VIII DEFICIENCY
     Dosage: 3000-2000UT
     Route: 042
     Dates: start: 20120226, end: 20120301
  56. CROSS EIGHT M [Concomitant]
     Active Substance: ANTIHEMOPHILIC FACTOR HUMAN
     Route: 042
     Dates: start: 20151019, end: 20151025
  57. MAGLAX [Concomitant]
     Active Substance: MAGNESIUM OXIDE
     Indication: CONSTIPATION PROPHYLAXIS
     Route: 048
     Dates: start: 20120214, end: 20120502
  58. NORVIR [Concomitant]
     Active Substance: RITONAVIR
     Indication: HIV INFECTION
     Route: 048
     Dates: start: 20110726
  59. HIVID [Concomitant]
     Active Substance: ZALCITABINE
     Indication: HIV INFECTION
     Route: 048
     Dates: start: 19961217, end: 19980408
  60. STOCRIN [Concomitant]
     Active Substance: EFAVIRENZ
     Indication: HIV INFECTION
     Route: 048
     Dates: start: 20000105, end: 20000817
  61. PREZISTA [Suspect]
     Active Substance: DARUNAVIR ETHANOLATE
     Dosage: 300 MG X 2 TABLETS PER DAY, TWICE DAILY.
     Route: 048
     Dates: start: 20070401
  62. T-20 [Suspect]
     Active Substance: ENFUVIRTIDE
     Indication: PRODUCT USED FOR UNKNOWN INDICATION
     Dosage: 2LU/DAY
     Route: 065
     Dates: start: 20060905, end: 20070422
  63. ZITHROMAC [Suspect]
     Active Substance: AZITHROMYCIN DIHYDRATE
     Indication: PROPHYLAXIS
     Route: 048
     Dates: start: 20020401, end: 20070807
  64. CROSS EIGHT M [Concomitant]
     Active Substance: ANTIHEMOPHILIC FACTOR HUMAN
     Dosage: 2000-1000UT
     Route: 042
     Dates: start: 20120302, end: 20120319
  65. CROSS EIGHT M [Concomitant]
     Active Substance: ANTIHEMOPHILIC FACTOR HUMAN
     Route: 042
     Dates: start: 20140402, end: 20150406
  66. CROSS EIGHT M [Concomitant]
     Active Substance: ANTIHEMOPHILIC FACTOR HUMAN
     Route: 042
     Dates: start: 20151209, end: 20151215
  67. POSTERISAN [Concomitant]
     Active Substance: LIDOCAINE
     Indication: HAEMORRHOIDS
     Route: 061
     Dates: start: 20120220, end: 20120316
  68. NERIPROCT [Concomitant]
     Active Substance: DIFLUCORTOLONE VALERATE\LIDOCAINE
     Indication: HAEMORRHOIDS
     Dosage: 1-3 TIMES A DAY
     Route: 054
     Dates: start: 20120220, end: 20120321
  69. STOCRIN [Concomitant]
     Active Substance: EFAVIRENZ
     Route: 048
     Dates: start: 20021205, end: 20050616
  70. COMBIVIR [Concomitant]
     Active Substance: LAMIVUDINE\ZIDOVUDINE
     Indication: HIV INFECTION
     Route: 048
     Dates: start: 20020604, end: 20021005

REACTIONS (17)
  - Gastrointestinal haemorrhage [Recovering/Resolving]
  - Herpes zoster [Recovered/Resolved]
  - Campylobacter gastroenteritis [Recovering/Resolving]
  - Oropharyngeal discomfort [Recovering/Resolving]
  - Haemorrhoids [Not Recovered/Not Resolved]
  - Hepatic function abnormal [Recovering/Resolving]
  - Liver function test increased [Recovered/Resolved]
  - Blood triglycerides increased [Recovering/Resolving]
  - Dyslipidaemia [Not Recovered/Not Resolved]
  - Bradycardia [Recovering/Resolving]
  - Liver function test abnormal [Recovering/Resolving]
  - Malaise [Recovering/Resolving]
  - Tachycardia paroxysmal [Recovered/Resolved]
  - Atrioventricular block second degree [Not Recovered/Not Resolved]
  - Haemoglobin decreased [Recovered/Resolved]
  - Anaemia [Recovered/Resolved]
  - Abdominal distension [Recovering/Resolving]

NARRATIVE: CASE EVENT DATE: 20070423
